FAERS Safety Report 6160105-4 (Version None)
Quarter: 2009Q2

REPORT INFORMATION
  Report Type: 
  Country: None (occurrence: None)
  Receive Date: 20090415
  Receipt Date: 20090330
  Transmission Date: 20091009
  Serious: Yes (Death)
  Sender: FDA-Public Use
  Company Number: 8044259

PATIENT
  Age: 67 Year
  Sex: Female

DRUGS (6)
  1. LEVETIRACETAM [Suspect]
     Indication: MYOCLONUS
  2. PROPOFOL [Suspect]
     Indication: SEDATIVE THERAPY
  3. MORPHINE [Concomitant]
  4. MIDAZOLAM HCL [Concomitant]
  5. VECURONIUM BROMIDE [Concomitant]
  6. PHENYTOIN [Concomitant]

REACTIONS (6)
  - CARDIAC ARREST [None]
  - CORONARY ARTERY DISEASE [None]
  - HAEMOPTYSIS [None]
  - MYOCLONUS [None]
  - NO THERAPEUTIC RESPONSE [None]
  - PULMONARY OEDEMA [None]
